FAERS Safety Report 13280739 (Version 2)
Quarter: 2017Q1

REPORT INFORMATION
  Report Type: Spontaneous
  Country: US (occurrence: US)
  Receive Date: 20170301
  Receipt Date: 20170331
  Transmission Date: 20170428
  Serious: No
  Sender: FDA-Public Use
  Company Number: US-009507513-1702USA007730

PATIENT

DRUGS (1)
  1. ZEPATIER [Suspect]
     Active Substance: ELBASVIR\GRAZOPREVIR
     Indication: HEPATITIS C
     Dosage: 1 PILL/ONCE A DAY
     Route: 048

REACTIONS (2)
  - Vascular resistance systemic decreased [Unknown]
  - Drug ineffective [Unknown]
